FAERS Safety Report 5265993-1 (Version None)
Quarter: 2007Q1

REPORT INFORMATION
  Report Type: 
  Country: None (occurrence: None)
  Receive Date: 20070312
  Receipt Date: 20070312
  Transmission Date: 20070707
  Serious: Yes (Hospitalization)
  Sender: FDA-Public Use
  Company Number: None

PATIENT
  Age: 55 Year
  Sex: Male
  Weight: 76.2043 kg

DRUGS (10)
  1. SU011248 [Suspect]
     Indication: PROSTATE CANCER
     Dosage: 50MG, QD, PO
     Route: 048
     Dates: start: 20060426, end: 20061127
  2. SU011248 [Suspect]
     Indication: PROSTATE CANCER
     Dosage: 37.5MG, QD, PO
     Route: 048
     Dates: start: 20061213, end: 20070109
  3. FLEXERIL [Concomitant]
  4. IBUPROFEN [Concomitant]
  5. FLOMAX [Concomitant]
  6. AMBIEN [Concomitant]
  7. PERCOCET [Concomitant]
  8. MORPHINE HCL ELIXIR [Concomitant]
  9. NEXIUM [Concomitant]
  10. OXYCODONE HCL [Concomitant]

REACTIONS (19)
  - ANAEMIA [None]
  - ARTHRALGIA [None]
  - BACK PAIN [None]
  - BALANCE DISORDER [None]
  - CLAVICLE FRACTURE [None]
  - CONFUSIONAL STATE [None]
  - DEAFNESS UNILATERAL [None]
  - DYSPHAGIA [None]
  - FALL [None]
  - GAIT DISTURBANCE [None]
  - HEADACHE [None]
  - MALIGNANT NEOPLASM PROGRESSION [None]
  - MENTAL STATUS CHANGES [None]
  - METASTASES TO BONE [None]
  - METASTASES TO CENTRAL NERVOUS SYSTEM [None]
  - PAPILLOEDEMA [None]
  - PATHOLOGICAL FRACTURE [None]
  - THROMBOCYTOPENIA [None]
  - VISUAL DISTURBANCE [None]
